FAERS Safety Report 10406624 (Version 2)
Quarter: 2014Q3

REPORT INFORMATION
  Report Type: Spontaneous
  Country: US (occurrence: US)
  Receive Date: 20140825
  Receipt Date: 20140825
  Transmission Date: 20150326
  Serious: Yes (Hospitalization, Disabling, Other)
  Sender: FDA-Public Use
  Company Number: US-009507513-2009SP017681

PATIENT
  Sex: Female
  Weight: 47.63 kg

DRUGS (8)
  1. TOPAMAX [Concomitant]
     Active Substance: TOPIRAMATE
     Indication: MIGRAINE
     Dosage: 100 MG, UNK
     Dates: start: 2003, end: 2006
  2. MAXALT [Concomitant]
     Active Substance: RIZATRIPTAN BENZOATE
  3. PARAFON FORTE [Concomitant]
     Active Substance: CHLORZOXAZONE
  4. NUVARING [Suspect]
     Active Substance: ETHINYL ESTRADIOL\ETONOGESTREL
     Dates: start: 200309
  5. TYLENOL [Concomitant]
     Active Substance: ACETAMINOPHEN
     Dosage: UNK UNK, PRN
  6. NUVARING [Suspect]
     Active Substance: ETHINYL ESTRADIOL\ETONOGESTREL
     Indication: MENSTRUAL CYCLE MANAGEMENT
     Dosage: 1 DF, QM
     Route: 067
     Dates: start: 2005
  7. NUVARING [Suspect]
     Active Substance: ETHINYL ESTRADIOL\ETONOGESTREL
     Dates: start: 200409
  8. NASACORT [Concomitant]
     Active Substance: TRIAMCINOLONE ACETONIDE
     Indication: HYPERSENSITIVITY
     Dosage: 16.5 G, UNK
     Dates: start: 2005

REACTIONS (24)
  - Off label use [Unknown]
  - Pain in extremity [Unknown]
  - Abdominal pain [Unknown]
  - Bursitis [Unknown]
  - Convulsion [Not Recovered/Not Resolved]
  - Erythema [Recovering/Resolving]
  - Vaginal discharge [Unknown]
  - Foot deformity [Unknown]
  - Urinary tract infection [Unknown]
  - Peroneal nerve palsy [Unknown]
  - Endotracheal intubation [Recovered/Resolved with Sequelae]
  - Insomnia [Unknown]
  - Anxiety [Unknown]
  - Cerebral infarction [Recovered/Resolved with Sequelae]
  - Acute sinusitis [Unknown]
  - Skin disorder [Unknown]
  - Metrorrhagia [Unknown]
  - Upper limb fracture [Unknown]
  - Atelectasis [Unknown]
  - Osteopenia [Unknown]
  - Pelvic pain [Unknown]
  - Spinal column injury [Unknown]
  - Electrocardiogram abnormal [Unknown]
  - Depression [Unknown]

NARRATIVE: CASE EVENT DATE: 20031007
